FAERS Safety Report 12737114 (Version 1)
Quarter: 2016Q3

REPORT INFORMATION
  Report Type: Spontaneous
  Country: US (occurrence: US)
  Receive Date: 20160912
  Receipt Date: 20160912
  Transmission Date: 20161109
  Serious: Yes (Other)
  Sender: FDA-Public Use
  Company Number: None

PATIENT
  Age: 63 Year
  Sex: Male

DRUGS (3)
  1. AVASTIN [Suspect]
     Active Substance: BEVACIZUMAB
     Indication: MACULAR OEDEMA
     Dosage: 1.25MG EVERY MONTH INTRAVITREAL
     Dates: start: 20160802
  2. BD SHORT NEEDLE INSULIN SYRINGES 31G [Suspect]
     Active Substance: DEVICE
  3. AVASTIN [Suspect]
     Active Substance: BEVACIZUMAB
     Indication: DIABETIC RETINOPATHY
     Dosage: 1.25MG EVERY MONTH INTRAVITREAL
     Dates: start: 20160802

REACTIONS (2)
  - Vitreous floaters [None]
  - Foreign body in eye [None]

NARRATIVE: CASE EVENT DATE: 20160802
